FAERS Safety Report 18542674 (Version 1)
Quarter: 2020Q4

REPORT INFORMATION
  Report Type: Spontaneous
  Country: FR (occurrence: FR)
  Receive Date: 20201124
  Receipt Date: 20201124
  Transmission Date: 20210114
  Serious: Yes (Life-Threatening)
  Sender: FDA-Public Use
  Company Number: FR-MYLANLABS-2020M1096445

PATIENT
  Age: 70 Year
  Sex: Male
  Weight: 100 kg

DRUGS (11)
  1. AIROMIR                            /00139502/ [Concomitant]
     Active Substance: ALBUTEROL SULFATE
     Dosage: UNK
  2. VALSARTAN. [Concomitant]
     Active Substance: VALSARTAN
     Dosage: UNK
  3. PROPOFOL. [Suspect]
     Active Substance: PROPOFOL
     Indication: INDUCTION OF ANAESTHESIA
     Dosage: 200 MILLIGRAM, TOTAL
     Route: 042
     Dates: start: 20201009, end: 20201009
  4. DEXAMETHASONE MYLAN [Suspect]
     Active Substance: DEXAMETHASONE
     Indication: INDUCTION OF ANAESTHESIA
     Dosage: 8 MILLIGRAM, TOTAL
     Route: 042
     Dates: start: 20201009, end: 20201009
  5. SPIRIVA [Concomitant]
     Active Substance: TIOTROPIUM BROMIDE MONOHYDRATE
     Dosage: UNK
  6. SUFENTANIL MYLAN [Suspect]
     Active Substance: SUFENTANIL
     Indication: INDUCTION OF ANAESTHESIA
     Dosage: 20 MICROGRAM, TOTAL
     Route: 042
     Dates: start: 20201009, end: 20201009
  7. PARACETAMOL CODEINE [Concomitant]
     Active Substance: ACETAMINOPHEN\CODEINE PHOSPHATE
     Dosage: UNK
  8. SYMBICORT [Concomitant]
     Active Substance: BUDESONIDE\FORMOTEROL FUMARATE DIHYDRATE
     Dosage: UNK
  9. JOSIR [Concomitant]
     Active Substance: TAMSULOSIN
     Dosage: UNK
  10. ALDACTAZINE [Concomitant]
     Active Substance: ALTHIAZIDE\SPIRONOLACTONE
     Dosage: UNK
  11. ROCURONIUM B BRAU [Suspect]
     Active Substance: ROCURONIUM BROMIDE
     Indication: INDUCTION OF ANAESTHESIA
     Dosage: 50 MILLIGRAM, TOTAL
     Route: 042
     Dates: start: 20201009, end: 20201009

REACTIONS (1)
  - Anaphylactic shock [Recovered/Resolved]

NARRATIVE: CASE EVENT DATE: 20201009
